FAERS Safety Report 20827698 (Version 3)
Quarter: 2025Q1

REPORT INFORMATION
  Report Type: Report from Study
  Country: GB (occurrence: GB)
  Receive Date: 20220513
  Receipt Date: 20250106
  Transmission Date: 20250408
  Serious: Yes (Hospitalization, Other)
  Sender: ROCHE
  Company Number: GB-ROCHE-3077328

PATIENT
  Sex: Female

DRUGS (14)
  1. TOCILIZUMAB [Suspect]
     Active Substance: TOCILIZUMAB
     Indication: Rheumatoid arthritis
     Route: 058
     Dates: start: 2012
  2. CALCIUM CARBONATE\CHOLECALCIFEROL [Concomitant]
     Active Substance: CALCIUM CARBONATE\CHOLECALCIFEROL
  3. FAMOTIDINE [Concomitant]
     Active Substance: FAMOTIDINE
  4. LANSOPRAZOLE [Concomitant]
     Active Substance: LANSOPRAZOLE
  5. FOLIC ACID [Concomitant]
     Active Substance: FOLIC ACID
  6. CITALOPRAM [Concomitant]
     Active Substance: CITALOPRAM
  7. ATORVASTATIN [Concomitant]
     Active Substance: ATORVASTATIN
  8. ACETAMINOPHEN [Concomitant]
     Active Substance: ACETAMINOPHEN
  9. VAGIFEM [Concomitant]
     Active Substance: ESTRADIOL
  10. CLOBETASOL [Concomitant]
     Active Substance: CLOBETASOL
  11. TOLTERODINE [Concomitant]
     Active Substance: TOLTERODINE
  12. FEXOFENADINE [Concomitant]
     Active Substance: FEXOFENADINE HYDROCHLORIDE
  13. TRAMADOL [Concomitant]
     Active Substance: TRAMADOL
  14. RIVAROXABAN [Concomitant]
     Active Substance: RIVAROXABAN

REACTIONS (10)
  - Dry mouth [Unknown]
  - Ageusia [Unknown]
  - Renal impairment [Unknown]
  - Anaemia [Unknown]
  - Blood sodium decreased [Unknown]
  - Blood potassium decreased [Unknown]
  - Blood phosphorus decreased [Unknown]
  - Calcium deficiency [Unknown]
  - Nephritis [Unknown]
  - Arthropathy [Unknown]
